FAERS Safety Report 6967353-1 (Version None)
Quarter: 2010Q3

REPORT INFORMATION
  Report Type: 
  Country: None (occurrence: None)
  Receive Date: 20100907
  Receipt Date: 20100902
  Transmission Date: 20110219
  Serious: Yes (Death)
  Sender: FDA-Public Use
  Company Number: BR-ASTRAZENECA-2009SE34033

PATIENT
  Age: 643 Month
  Sex: Female

DRUGS (1)
  1. SEROQUEL [Suspect]
     Indication: ANXIETY DISORDER
     Route: 048

REACTIONS (2)
  - ACUTE RESPIRATORY FAILURE [None]
  - DRUG INTOLERANCE [None]
